FAERS Safety Report 23730231 (Version 1)
Quarter: 2024Q2

REPORT INFORMATION
  Report Type: Spontaneous
  Country: US (occurrence: None)
  Receive Date: 20240411
  Receipt Date: 20240411
  Transmission Date: 20240716
  Serious: Yes (Hospitalization)
  Sender: FDA-Public Use
  Company Number: US-ROCHE-3538001

PATIENT
  Age: 59 Year
  Sex: Female

DRUGS (1)
  1. XOLAIR [Suspect]
     Active Substance: OMALIZUMAB
     Indication: Product used for unknown indication
     Route: 065
     Dates: start: 20240228

REACTIONS (9)
  - Memory impairment [Unknown]
  - Throat irritation [Unknown]
  - Dyspnoea [Unknown]
  - Vision blurred [Unknown]
  - Muscle spasms [Unknown]
  - Cough [Unknown]
  - Wheezing [Unknown]
  - Illness [Unknown]
  - Vomiting [Unknown]
